FAERS Safety Report 12180665 (Version 1)
Quarter: 2016Q1

REPORT INFORMATION
  Report Type: Spontaneous
  Country: US (occurrence: US)
  Receive Date: 20160315
  Receipt Date: 20160315
  Transmission Date: 20160526
  Serious: Yes (Other)
  Sender: FDA-Public Use
  Company Number: US-BEH-2016059837

PATIENT
  Sex: Female
  Weight: 29 kg

DRUGS (6)
  1. DIPHENHYDRAMINE. [Concomitant]
     Active Substance: DIPHENHYDRAMINE
  2. ACETAMINOPHEN. [Concomitant]
     Active Substance: ACETAMINOPHEN
  3. AMOXICILLIN. [Concomitant]
     Active Substance: AMOXICILLIN
  4. LIDOCAINE/PRILOCAINE [Concomitant]
  5. EPIPEN JR [Concomitant]
     Active Substance: EPINEPHRINE
  6. HIZENTRA [Suspect]
     Active Substance: HUMAN IMMUNOGLOBULIN G
     Indication: SELECTIVE IGG SUBCLASS DEFICIENCY
     Route: 058

REACTIONS (3)
  - Ear infection [Unknown]
  - Respiratory tract infection [Unknown]
  - Sinusitis [Unknown]
